FAERS Safety Report 14137936 (Version 1)
Quarter: 2017Q4

REPORT INFORMATION
  Report Type: Spontaneous
  Country: GR (occurrence: GR)
  Receive Date: 20171027
  Receipt Date: 20171027
  Transmission Date: 20180321
  Serious: Yes (Other)
  Sender: FDA-Public Use
  Company Number: GR-009507513-1710GRC013835

PATIENT
  Sex: Male

DRUGS (3)
  1. JANUVIA [Suspect]
     Active Substance: SITAGLIPTIN PHOSPHATE
     Dosage: 100 MG, 1 TABLET DAILY
     Route: 048
     Dates: start: 2015
  2. SINTROM [Concomitant]
     Active Substance: ACENOCOUMAROL
  3. LAPRAZOL [Concomitant]
     Active Substance: LANSOPRAZOLE

REACTIONS (2)
  - Diarrhoea [Not Recovered/Not Resolved]
  - Myocardial infarction [Unknown]
